FAERS Safety Report 8182281-4 (Version None)
Quarter: 2012Q1

REPORT INFORMATION
  Report Type: 
  Country: None (occurrence: None)
  Receive Date: 20120302
  Receipt Date: 20120227
  Transmission Date: 20120608
  Serious: Yes (Other)
  Sender: FDA-Public Use
  Company Number: PHHY2012BR016730

PATIENT
  Sex: Female

DRUGS (1)
  1. EXFORGE HCT [Suspect]
     Dosage: (160/5/12.5 MG),

REACTIONS (3)
  - GLAUCOMA [None]
  - INTRAOCULAR PRESSURE TEST ABNORMAL [None]
  - BLOOD PRESSURE FLUCTUATION [None]
